FAERS Safety Report 16576695 (Version 1)
Quarter: 2019Q3

REPORT INFORMATION
  Report Type: Spontaneous
  Country: DE (occurrence: DE)
  Receive Date: 20190716
  Receipt Date: 20190716
  Transmission Date: 20191004
  Serious: Yes (Hospitalization)
  Sender: FDA-Public Use
  Company Number: DE-TEVA-2019-DE-1077150

PATIENT
  Age: 83 Year
  Sex: Male
  Weight: 103 kg

DRUGS (15)
  1. FOLINS?URE [Concomitant]
     Active Substance: LEUCOVORIN
     Dosage: 500 MG, LAST ADMINISTRATION ON 12/11/2017
     Route: 042
  2. DEKRISTOL [Concomitant]
     Active Substance: CHOLECALCIFEROL
     Dosage: 20000 IU/MONTH, 2XMONTH
  3. PHENPROCOUMON [Concomitant]
     Active Substance: PHENPROCOUMON
     Dosage: 3 MG, ACCORDING TO SCHEME
  4. BISOPROLOL [Concomitant]
     Active Substance: BISOPROLOL
     Dosage: 5 MG, 0.5-0-0.5-0
  5. XELEVIA 50MG [Concomitant]
     Dosage: 50 MG, 1-0-0-0
  6. BICANORM [Concomitant]
     Active Substance: SODIUM BICARBONATE
     Dosage: NK MG, 1-0-1-0
  7. RAMIPRIL. [Concomitant]
     Active Substance: RAMIPRIL
     Dosage: 5 MG, 1-0-1-0
  8. INNOHEP 18000I.E. [Concomitant]
     Dosage: 18000 IU, BY SCHEME, PRE-FILLED SYRINGES
     Route: 058
  9. FLUOROURACIL. [Suspect]
     Active Substance: FLUOROURACIL
     Dosage: 500 MG, RUNNING CHEMO, LAST ADMINISTRATION ON 11.12.2017 LAST ADMINISTRATION NK
     Route: 042
  10. ATROVENT [Concomitant]
     Active Substance: IPRATROPIUM BROMIDE
     Dosage: 500 ?G, NK
     Route: 055
  11. PREDNISOLON [Suspect]
     Active Substance: PREDNISOLONE
     Dosage: 25 MG, ACCORDING TO SCHEME
  12. IRINOTECAN [Suspect]
     Active Substance: IRINOTECAN
     Dosage: 100 MG, LAST ADMINISTRATION ON 12/11/2017
     Route: 042
  13. PANTOPRAZOL [Concomitant]
     Active Substance: PANTOPRAZOLE SODIUM
     Dosage: 40 MG, 1-0-1-0
  14. SALBUTAMOL [Concomitant]
     Active Substance: ALBUTEROL
     Dosage: 1.5 MG, NK
     Route: 055
  15. TORASEMID [Concomitant]
     Active Substance: TORSEMIDE
     Dosage: 10 MG, 1-0-0-0

REACTIONS (3)
  - General physical health deterioration [Unknown]
  - Cough [Unknown]
  - Dyspnoea exertional [Unknown]
